FAERS Safety Report 25307347 (Version 11)
Quarter: 2025Q4

REPORT INFORMATION
  Report Type: Spontaneous
  Country: None (occurrence: BR)
  Receive Date: 20250513
  Receipt Date: 20251221
  Transmission Date: 20260118
  Serious: Yes (Hospitalization, Other)
  Sender: SAREPTA THERAPEUTICS
  Company Number: BR-SAREPTA THERAPEUTICS INC.-SRP2025-005996

PATIENT
  Weight: 39.4 kg

DRUGS (15)
  1. ELEVIDYS [Suspect]
     Active Substance: DELANDISTROGENE MOXEPARVOVEC-ROKL
     Indication: Duchenne muscular dystrophy
     Dosage: 38 VIALS- RECONSTITUTED IN 7 SYRINGES OF 50ML AND 1 SYRINGE OF 30ML - USE A 0.2 MICRON FILTER - RUN AT 8-10ML/KG/H FOR 2 HOURS.
     Route: 065
  2. RITUXIMAB [Suspect]
     Active Substance: RITUXIMAB
     Indication: Myopathy
     Dosage: 375 MG/M2472 MG PER DOSE TWO CYCLES OF LOADING DOSE RITUXIMAB - 500 MG/50 ML MABTHERA APPLY 472 MG = 47.2 ML
     Route: 065
  3. RITUXIMAB [Suspect]
     Active Substance: RITUXIMAB
     Dosage: 472 MILLIGRAM- 500 MG/50 ML MABTHERA APPLY 472 MG = 47.2 ML/WEEK
     Route: 065
  4. IMMUNE GLOBULIN NOS [Suspect]
     Active Substance: IMMUNE GLOBULIN NOS
     Indication: Myopathy
     Dosage: UNK
     Route: 065
  5. PREDNISOLONE [Concomitant]
     Active Substance: PREDNISOLONE
     Indication: Product used for unknown indication
     Dosage: 3MG/ML 13ML40 MG
     Route: 061
  6. PREDNISOLONE [Concomitant]
     Active Substance: PREDNISOLONE
     Dosage: 3MG/ML 13MLSOLUTION IN THE MORNING
     Route: 061
  7. PREDNISOLONE [Concomitant]
     Active Substance: PREDNISOLONE
     Dosage: 39 MILLIGRAM
     Route: 061
  8. LOSARTAN [Concomitant]
     Active Substance: LOSARTAN
     Indication: Product used for unknown indication
     Dosage: 25 MILLIGRAM
     Route: 061
  9. PREDNISONE [Concomitant]
     Active Substance: PREDNISONE
     Indication: Product used for unknown indication
     Dosage: 3MG/ML 13ML
     Route: 061
  10. PREDNISONE [Concomitant]
     Active Substance: PREDNISONE
     Dosage: 13ML/MG
  11. PREDNISONE [Concomitant]
     Active Substance: PREDNISONE
     Dosage: 0.5 MILLIGRAM/KILOGRAM
  12. DIPYRONE [Concomitant]
     Active Substance: DIPYRONE
     Indication: Product used for unknown indication
     Dosage: ADMINISTER 1.5 ML IV AS NEEDED IN CASE OF FEVER (}37.8 DEGREE CELCIUS).
  13. ONDANSETRON [Concomitant]
     Active Substance: ONDANSETRON
     Indication: Product used for unknown indication
     Dosage: 2 MG/MLADMINISTER 2 ML IV EVERY 8 HOURS IN CASE OF NAUSEA OR VOMITING.
  14. HYDROCORTISONE [Concomitant]
     Active Substance: HYDROCORTISONE
     Indication: Product used for unknown indication
     Dosage: VIAL (500MG/5ML) - DILUTE 2ML IN 500ML OF 0.9% SALINE SOLUTION AND RUN IN BIC IV IN 30M, ACM SOS
  15. DIPHENHYDRAMINE [Concomitant]
     Active Substance: DIPHENHYDRAMINE
     Indication: Product used for unknown indication
     Dosage: (50MG/ML) - ADMINISTER 1.5ML IV AND, IN CASE OF ALLERGIC REACTION, ACM 1MG/KG IV (MAXIMUM 50MG) 1X AS DIRECTED BY A DOCTOR SOS

REACTIONS (22)
  - Abdominal pain [Recovered/Resolved]
  - Pain [Recovering/Resolving]
  - Pain in extremity [Unknown]
  - Gait inability [Recovered/Resolved]
  - Immune-mediated myositis [Recovered/Resolved]
  - Nausea [Recovered/Resolved]
  - Myopathy [Unknown]
  - Wheelchair user [Unknown]
  - Muscle enzyme increased [Recovered/Resolved]
  - Decreased appetite [Recovered/Resolved]
  - C-reactive protein increased [Recovered/Resolved]
  - Myalgia [Not Recovered/Not Resolved]
  - Gait disturbance [Unknown]
  - Motor dysfunction [Unknown]
  - Abdominal pain upper [Unknown]
  - Asthenia [Unknown]
  - Dyspnoea [Unknown]
  - Areflexia [Unknown]
  - Fall [Unknown]
  - Vomiting [Recovered/Resolved]
  - Pyrexia [Recovered/Resolved]
  - Off label use [Unknown]
